FAERS Safety Report 19470294 (Version 1)
Quarter: 2021Q2

REPORT INFORMATION
  Report Type: Spontaneous
  Country: IT (occurrence: IT)
  Receive Date: 20210628
  Receipt Date: 20210628
  Transmission Date: 20210717
  Serious: Yes (Hospitalization)
  Sender: FDA-Public Use
  Company Number: IT-PFIZER INC-2021698570

PATIENT
  Age: 29 Year
  Sex: Female

DRUGS (2)
  1. CEMISIANA [Suspect]
     Active Substance: DIENOGEST\ETHINYL ESTRADIOL
     Indication: HYPERPROLACTINAEMIA
     Dosage: 1 DF, 1X/DAY
     Route: 048
     Dates: start: 20210510, end: 20210530
  2. DOSTINEX [Suspect]
     Active Substance: CABERGOLINE
     Dosage: 0.25 MG, WEEKLY
     Dates: start: 20210501, end: 20210530

REACTIONS (5)
  - Drug-induced liver injury [Recovered/Resolved]
  - Jaundice [Recovered/Resolved]
  - Pruritus [Recovered/Resolved]
  - Hypertransaminasaemia [Recovered/Resolved]
  - Hyperbilirubinaemia [Recovered/Resolved]

NARRATIVE: CASE EVENT DATE: 20210530
